FAERS Safety Report 18644539 (Version 1)
Quarter: 2020Q4

REPORT INFORMATION
  Report Type: Spontaneous
  Country: US (occurrence: US)
  Receive Date: 20201221
  Receipt Date: 20201221
  Transmission Date: 20210114
  Serious: Yes (Hospitalization)
  Sender: FDA-Public Use
  Company Number: US-BAYER-2020-278400

PATIENT
  Age: 94 Year
  Sex: Female

DRUGS (2)
  1. COLACE [Suspect]
     Active Substance: DOCUSATE SODIUM
  2. MIRALAX [Suspect]
     Active Substance: POLYETHYLENE GLYCOL 3350
     Indication: GASTROINTESTINAL DISORDER

REACTIONS (2)
  - Diarrhoea [None]
  - Nephrolithiasis [None]
